FAERS Safety Report 7081807-1 (Version None)
Quarter: 2010Q4

REPORT INFORMATION
  Report Type: 
  Country: None (occurrence: None)
  Receive Date: 20101103
  Receipt Date: 20101021
  Transmission Date: 20110411
  Serious: Yes (Hospitalization, Other)
  Sender: FDA-Public Use
  Company Number: DE-ELI_LILLY_AND_COMPANY-DE201010005050

PATIENT
  Age: 59 Year
  Sex: Female

DRUGS (5)
  1. ZYPREXA [Suspect]
     Indication: SCHIZOPHRENIA
     Dosage: 20 MG, DAILY (1/D)
     Route: 048
     Dates: end: 20100901
  2. PERAZIN                            /00162503/ [Concomitant]
     Dosage: 300-400MG, UNKNOWN
     Route: 065
  3. AKINETON /00079501/ [Concomitant]
     Dosage: UNK, UNKNOWN
     Route: 065
  4. CHLORALDURAT [Concomitant]
     Dosage: UNK, UNKNOWN
     Route: 065
  5. TIAPRIDEX [Concomitant]
     Dosage: 200 MG, UNKNOWN
     Route: 065

REACTIONS (2)
  - COLITIS ISCHAEMIC [None]
  - THROMBOSIS MESENTERIC VESSEL [None]
